FAERS Safety Report 12866360 (Version 4)
Quarter: 2016Q4

REPORT INFORMATION
  Report Type: Report from Study
  Country: None (occurrence: FR)
  Receive Date: 20161020
  Receipt Date: 20161104
  Transmission Date: 20170207
  Serious: Yes (Disabling)
  Sender: FDA-Public Use
  Company Number: FR-ABBVIE-16P-056-1752093-00

PATIENT
  Age: 72 Year
  Sex: Female
  Weight: 67 kg

DRUGS (41)
  1. LEVOTHYROX [Concomitant]
     Active Substance: LEVOTHYROXINE
     Indication: HYPOTHYROIDISM
     Route: 048
  2. TAZOCILLINE [Concomitant]
     Active Substance: PIPERACILLIN SODIUM\TAZOBACTAM SODIUM
     Indication: FEBRILE NEUTROPENIA
     Route: 042
     Dates: start: 20160914, end: 20160918
  3. TAZOCILLINE [Concomitant]
     Active Substance: PIPERACILLIN SODIUM\TAZOBACTAM SODIUM
     Route: 042
     Dates: start: 20160930
  4. INIPOMP [Concomitant]
     Active Substance: PANTOPRAZOLE SODIUM
     Indication: PROPHYLAXIS
     Route: 048
  5. CYCLOSPORINE. [Concomitant]
     Active Substance: CYCLOSPORINE
     Indication: PRODUCT USED FOR UNKNOWN INDICATION
     Route: 048
  6. TIORFAN [Concomitant]
     Active Substance: RACECADOTRIL
     Indication: DIARRHOEA
     Route: 048
     Dates: start: 20160911, end: 20160913
  7. SMECTA [Concomitant]
     Active Substance: MONTMORILLONITE
     Indication: DIARRHOEA
     Route: 048
     Dates: start: 20160913, end: 20160913
  8. AMIKLIN [Concomitant]
     Active Substance: AMIKACIN SULFATE
     Indication: FEBRILE NEUTROPENIA
     Route: 042
     Dates: start: 20160918, end: 20160918
  9. BRICANYL [Concomitant]
     Active Substance: TERBUTALINE SULFATE
     Route: 055
     Dates: start: 20161010, end: 20161010
  10. MORPHINE [Concomitant]
     Active Substance: MORPHINE
     Indication: ACUTE RESPIRATORY FAILURE
     Route: 042
     Dates: start: 20161011, end: 20161013
  11. VENETOCLAX [Suspect]
     Active Substance: VENETOCLAX
     Indication: ACUTE MYELOID LEUKAEMIA
     Dosage: DAILY ON DAYS 1-28 OF EACH 28 DAY CYCLE
     Route: 048
     Dates: start: 20160908
  12. WELLVONE [Concomitant]
     Active Substance: ATOVAQUONE
     Indication: PROPHYLAXIS
     Route: 048
  13. TIORFAN [Concomitant]
     Active Substance: RACECADOTRIL
     Route: 048
     Dates: start: 20160918, end: 20161007
  14. IMODIUM [Concomitant]
     Active Substance: LOPERAMIDE HYDROCHLORIDE
     Indication: DIARRHOEA
     Route: 048
     Dates: start: 20160913, end: 20161007
  15. LASILIX [Concomitant]
     Active Substance: FUROSEMIDE
     Indication: PRODUCT USED FOR UNKNOWN INDICATION
     Route: 042
     Dates: start: 20160927, end: 20160927
  16. TAZOCILLINE [Concomitant]
     Active Substance: PIPERACILLIN SODIUM\TAZOBACTAM SODIUM
     Indication: LUNG DISORDER
     Route: 042
     Dates: start: 20160816, end: 20160825
  17. ZOPHREN [Concomitant]
     Active Substance: ONDANSETRON
     Indication: PROPHYLAXIS OF NAUSEA AND VOMITING
     Route: 048
     Dates: start: 20160912, end: 20160920
  18. ZOPHREN [Concomitant]
     Active Substance: ONDANSETRON
     Route: 048
     Dates: start: 20160922, end: 20160922
  19. SMECTA [Concomitant]
     Active Substance: MONTMORILLONITE
     Route: 048
     Dates: start: 20160927, end: 20160927
  20. VANCOMYCINE [Concomitant]
     Active Substance: VANCOMYCIN
     Indication: FEBRILE NEUTROPENIA
     Route: 048
     Dates: start: 20160924, end: 20160927
  21. SOLU-MEDROL [Concomitant]
     Active Substance: METHYLPREDNISOLONE SODIUM SUCCINATE
     Route: 042
     Dates: start: 20161010, end: 20161010
  22. BRICANYL [Concomitant]
     Active Substance: TERBUTALINE SULFATE
     Indication: RESPIRATORY TRACT CONGESTION
     Route: 055
     Dates: start: 20161007, end: 20161007
  23. LEDERFOLINE [Concomitant]
     Active Substance: LEUCOVORIN CALCIUM
     Indication: PRODUCT USED FOR UNKNOWN INDICATION
     Route: 048
     Dates: start: 20160816
  24. PRIMPERAN [Concomitant]
     Active Substance: METOCLOPRAMIDE HYDROCHLORIDE
     Indication: PROPHYLAXIS OF NAUSEA AND VOMITING
     Route: 048
     Dates: start: 20160909, end: 20160909
  25. PARACETAMOL [Concomitant]
     Active Substance: ACETAMINOPHEN
     Indication: FEBRILE NEUTROPENIA
     Route: 042
     Dates: start: 20160917, end: 20160919
  26. LASILIX [Concomitant]
     Active Substance: FUROSEMIDE
     Route: 042
     Dates: start: 20161009, end: 20161009
  27. LUMIGAN [Concomitant]
     Active Substance: BIMATOPROST
     Indication: OCULAR HYPERTENSION
     Route: 047
  28. CLAMOXYL [Concomitant]
     Active Substance: AMOXICILLIN\CLAVULANIC ACID
     Indication: PROPHYLAXIS
     Route: 048
     Dates: start: 20160826
  29. ZYLORIC [Concomitant]
     Active Substance: ALLOPURINOL
     Indication: PROPHYLAXIS
     Route: 048
     Dates: start: 20160907
  30. ZOPHREN [Concomitant]
     Active Substance: ONDANSETRON
     Route: 048
     Dates: start: 20161001, end: 20161001
  31. PARACETAMOL [Concomitant]
     Active Substance: ACETAMINOPHEN
     Route: 042
     Dates: start: 20160930, end: 20160930
  32. DIFFU K [Concomitant]
     Active Substance: POTASSIUM CHLORIDE
     Indication: HYPOKALAEMIA
     Route: 048
     Dates: start: 20160817
  33. CACIT D3 [Concomitant]
     Active Substance: CALCIUM\CHOLECALCIFEROL
     Indication: PROPHYLAXIS
     Route: 048
  34. TIENAM [Concomitant]
     Active Substance: CILASTATIN SODIUM\IMIPENEM
     Route: 042
     Dates: start: 20161007, end: 20161011
  35. COBIMETINIB [Suspect]
     Active Substance: COBIMETINIB
     Indication: ACUTE MYELOID LEUKAEMIA
     Dosage: DAILY ON DAYS 1-28 OF EACH 28 DAY CYCLE
     Route: 048
     Dates: start: 20160908
  36. ZELITREX [Concomitant]
     Active Substance: VALACYCLOVIR HYDROCHLORIDE
     Indication: PROPHYLAXIS
     Route: 048
  37. POLARAMINE [Concomitant]
     Active Substance: DEXCHLORPHENIRAMINE MALEATE
     Indication: PRODUCT USED FOR UNKNOWN INDICATION
     Route: 042
     Dates: start: 20160825, end: 20160825
  38. TIENAM [Concomitant]
     Active Substance: CILASTATIN SODIUM\IMIPENEM
     Indication: FEBRILE NEUTROPENIA
     Route: 042
     Dates: start: 20160918, end: 20160928
  39. LASILIX [Concomitant]
     Active Substance: FUROSEMIDE
     Route: 042
     Dates: start: 20161010, end: 20161010
  40. SOLU-MEDROL [Concomitant]
     Active Substance: METHYLPREDNISOLONE SODIUM SUCCINATE
     Indication: RESPIRATORY FAILURE
     Route: 042
     Dates: start: 20161007, end: 20161007
  41. AMBISOME [Concomitant]
     Active Substance: AMPHOTERICIN B
     Indication: PRODUCT USED FOR UNKNOWN INDICATION
     Route: 042
     Dates: start: 20161007, end: 20161011

REACTIONS (1)
  - Confusional state [Not Recovered/Not Resolved]

NARRATIVE: CASE EVENT DATE: 20161006
